FAERS Safety Report 25037778 (Version 1)
Quarter: 2025Q1

REPORT INFORMATION
  Report Type: Other
  Country: CH (occurrence: CH)
  Receive Date: 20250304
  Receipt Date: 20250304
  Transmission Date: 20250409
  Serious: Yes (Hospitalization, Other)
  Sender: Kanchan Healthcare
  Company Number: CH-Kanchan Healthcare INC-2172193

PATIENT
  Age: 77 Year
  Sex: Male

DRUGS (2)
  1. OXCARBAZEPINE [Suspect]
     Active Substance: OXCARBAZEPINE
     Indication: Trigeminal neuralgia
  2. CANDESARTAN [Concomitant]
     Active Substance: CANDESARTAN

REACTIONS (4)
  - Cholestatic liver injury [Recovered/Resolved]
  - Product use in unapproved indication [Unknown]
  - Inflammation [Recovered/Resolved]
  - Polyserositis [Recovered/Resolved]
